FAERS Safety Report 23467718 (Version 2)
Quarter: 2024Q1

REPORT INFORMATION
  Report Type: Report from Study
  Country: US (occurrence: US)
  Receive Date: 20240201
  Receipt Date: 20240213
  Transmission Date: 20240410
  Serious: No
  Sender: FDA-Public Use
  Company Number: US-JNJFOC-20240168230

PATIENT
  Age: 41 Year
  Sex: Male

DRUGS (7)
  1. SPRAVATO [Suspect]
     Active Substance: ESKETAMINE
     Indication: Depression
     Dosage: 84 MG, 1 DOSE
     Dates: start: 20230412
  2. SPRAVATO [Suspect]
     Active Substance: ESKETAMINE
     Indication: Major depression
     Dosage: 84 MG, 6 DOSES
     Dates: start: 20231214, end: 20240102
  3. SPRAVATO [Suspect]
     Active Substance: ESKETAMINE
     Dosage: 84 MG, 1 DOSE
     Dates: start: 20240116, end: 20240116
  4. SPRAVATO [Suspect]
     Active Substance: ESKETAMINE
     Dosage: RECENT DOSE
     Dates: start: 20240123, end: 20240123
  5. HYDROXYZINE [Concomitant]
     Active Substance: HYDROXYZINE HYDROCHLORIDE
     Indication: Anxiety
     Route: 065
     Dates: start: 202309
  6. FETZIMA [Concomitant]
     Active Substance: LEVOMILNACIPRAN HYDROCHLORIDE
     Indication: Major depression
     Route: 065
     Dates: start: 202310
  7. DEXTROAMPHETAMINE [Concomitant]
     Active Substance: DEXTROAMPHETAMINE
     Indication: Attention deficit hyperactivity disorder
     Route: 065
     Dates: start: 202309

REACTIONS (1)
  - Urinary tract infection [Recovered/Resolved]

NARRATIVE: CASE EVENT DATE: 20240116
